FAERS Safety Report 17489422 (Version 1)
Quarter: 2020Q1

REPORT INFORMATION
  Report Type: Report from Study
  Country: GB (occurrence: GB)
  Receive Date: 20200303
  Receipt Date: 20200303
  Transmission Date: 20200409
  Serious: Yes (Hospitalization)
  Sender: FDA-Public Use
  Company Number: GB-MYLANLABS-2020M1023040

PATIENT
  Age: 70 Year
  Sex: Female

DRUGS (17)
  1. SALBUTAMOL [Concomitant]
     Active Substance: ALBUTEROL
     Dosage: 1 PUFF
     Route: 048
  2. CALCICHEW D3 FORTE [Concomitant]
     Active Substance: CALCIUM\CHOLECALCIFEROL
     Indication: CALCIUM DEFICIENCY
     Dosage: 1 DOSAGE FORM, PM 1 TABLET EVERY NIGHT (ON)
     Route: 048
  3. CALCICHEW D3 FORTE [Concomitant]
     Active Substance: CALCIUM\CHOLECALCIFEROL
     Indication: VITAMIN D DEFICIENCY
     Dosage: UNK
  4. DIHYDROCODEINE [Concomitant]
     Active Substance: DIHYDROCODEINE
     Indication: PAIN
     Dosage: 30 MILLIGRAM
     Route: 048
     Dates: start: 20161116
  5. TRASTUZUMAB. [Suspect]
     Active Substance: TRASTUZUMAB
     Dosage: NUMBER OF CYCLES PER REGIMEN: 6
     Route: 042
     Dates: start: 20160921
  6. SALBUTAMOL [Concomitant]
     Active Substance: ALBUTEROL
     Indication: ASTHMA
     Dosage: 2 PUFF QDS WHEN NECESSARY
     Route: 048
  7. CYCLIZINE [Concomitant]
     Active Substance: CYCLIZINE
     Indication: NAUSEA
     Dosage: 50 MILLIGRAM
     Route: 048
  8. DOCETAXEL. [Suspect]
     Active Substance: DOCETAXEL
     Indication: HER-2 POSITIVE BREAST CANCER
     Dosage: 132 MILLIGRAM, QW
     Route: 042
     Dates: start: 20160728
  9. PERTUZUMAB. [Suspect]
     Active Substance: PERTUZUMAB
     Indication: HER-2 POSITIVE BREAST CANCER
     Dosage: NUMBER OF CYCLES PER REGIMEN: 6
     Route: 042
     Dates: start: 20160728, end: 20160728
  10. PERTUZUMAB. [Suspect]
     Active Substance: PERTUZUMAB
     Dosage: NUMBER OF CYCLES PER REGIMEN: 6
     Route: 042
     Dates: start: 20160803
  11. RANITIDINE. [Concomitant]
     Active Substance: RANITIDINE
     Dosage: 300 MILLIGRAM, QD
     Route: 048
     Dates: start: 20160811
  12. CO-AMOXICLAV                       /00756801/ [Concomitant]
     Active Substance: AMOXICILLIN\CLAVULANIC ACID
     Dosage: OTHER: OVER THE COURSE OF 4 DAYS
     Route: 048
     Dates: start: 20160815, end: 20160819
  13. PARACETAMOL [Concomitant]
     Active Substance: ACETAMINOPHEN
     Indication: ABDOMINAL PAIN LOWER
     Dosage: 1000 MILLIGRAM, QD
     Route: 048
  14. TRASTUZUMAB. [Suspect]
     Active Substance: TRASTUZUMAB
     Dosage: NUMBER OF CYCLES PER REGIMEN: 6
     Route: 042
     Dates: start: 20160803, end: 20160824
  15. TAZOCIN [Concomitant]
     Active Substance: PIPERACILLIN SODIUM\TAZOBACTAM SODIUM
     Dosage: 13.5 MILLIGRAM, QD
     Route: 042
     Dates: start: 20160811, end: 20160813
  16. TRASTUZUMAB. [Suspect]
     Active Substance: TRASTUZUMAB
     Indication: HER-2 POSITIVE BREAST CANCER
     Dosage: NUMBER OF CYCLES PER REGIMEN: 6
     Route: 042
     Dates: start: 20160628, end: 20160628
  17. LAXIDO [Concomitant]
     Active Substance: POLYETHYLENE GLYCOL 3350\POTASSIUM CHLORIDE\SODIUM BICARBONATE\SODIUM CHLORIDE
     Indication: DIARRHOEA
     Dosage: 1 OTHER SACHET
     Route: 048
     Dates: start: 20161121, end: 20161122

REACTIONS (2)
  - Biliary sepsis [Recovered/Resolved with Sequelae]
  - Abdominal pain [Not Recovered/Not Resolved]

NARRATIVE: CASE EVENT DATE: 20170104
